FAERS Safety Report 11006405 (Version 1)
Quarter: 2015Q2

REPORT INFORMATION
  Report Type: Spontaneous
  Country: US (occurrence: US)
  Receive Date: 20150409
  Receipt Date: 20150409
  Transmission Date: 20150821
  Serious: No
  Sender: FDA-Public Use
  Company Number: US-ALLERGAN-1415469US

PATIENT
  Sex: Female

DRUGS (1)
  1. LATISSE [Suspect]
     Active Substance: BIMATOPROST
     Indication: GROWTH OF EYELASHES
     Dosage: UNK
     Route: 061
     Dates: start: 20140702

REACTIONS (7)
  - Eyelid irritation [Unknown]
  - Erythema [Unknown]
  - Ocular hyperaemia [Unknown]
  - Eye irritation [Unknown]
  - Skin irritation [Unknown]
  - Wrong technique in drug usage process [Unknown]
  - Erythema of eyelid [Unknown]
